FAERS Safety Report 5082735-3 (Version None)
Quarter: 2006Q3

REPORT INFORMATION
  Report Type: 
  Country: None (occurrence: None)
  Receive Date: 20060816
  Receipt Date: 20060816
  Transmission Date: 20061208
  Serious: Yes (Hospitalization)
  Sender: FDA-Public Use
  Company Number: None

PATIENT
  Age: 55 Year
  Sex: Male
  Weight: 97.3 kg

DRUGS (7)
  1. INNOHEP [Suspect]
     Indication: GLIOBLASTOMA MULTIFORME
     Dosage: 4500 IU SC QD
     Route: 058
     Dates: start: 20060508
  2. LOTREL [Concomitant]
  3. NEXIUM [Concomitant]
  4. DECADRON [Concomitant]
  5. GLUCOTROL [Concomitant]
  6. CALCIUM PLUS VITAMIN D [Concomitant]
  7. ZOFRAN [Concomitant]

REACTIONS (5)
  - DIPLOPIA [None]
  - HEADACHE [None]
  - NAUSEA [None]
  - VITH NERVE PARALYSIS [None]
  - VOMITING [None]
